FAERS Safety Report 7053485-9 (Version None)
Quarter: 2010Q4

REPORT INFORMATION
  Report Type: 
  Country: None (occurrence: None)
  Receive Date: 20101020
  Receipt Date: 20101007
  Transmission Date: 20110411
  Serious: No
  Sender: FDA-Public Use
  Company Number: US-PFIZER INC-2010128457

PATIENT
  Sex: Female
  Weight: 86.168 kg

DRUGS (6)
  1. CADUET [Suspect]
     Indication: BLOOD CHOLESTEROL INCREASED
     Dosage: 10 MG / 40 MG, 1X/DAY
     Route: 048
     Dates: start: 20090101
  2. CADUET [Suspect]
     Indication: HYPERTENSION
  3. SITAGLIPTIN [Concomitant]
     Indication: DIABETES MELLITUS
     Dosage: UNK
  4. LASIX [Concomitant]
     Indication: FLUID RETENTION
     Dosage: UNK
  5. SYNTHROID [Concomitant]
     Indication: THYROID DISORDER
     Dosage: UNK
  6. NEXIUM [Concomitant]
     Dosage: UNK

REACTIONS (1)
  - DRUG PRESCRIBING ERROR [None]
